FAERS Safety Report 4912176-8 (Version None)
Quarter: 2006Q1

REPORT INFORMATION
  Report Type: 
  Country: None (occurrence: None)
  Receive Date: 20060215
  Receipt Date: 20050901
  Transmission Date: 20060701
  Serious: No
  Sender: FDA-Public Use
  Company Number: US-GLAXOSMITHKLINE-A0572744A

PATIENT
  Age: 68 Year
  Sex: Female

DRUGS (6)
  1. VALTREX [Suspect]
     Dosage: 1G TWICE PER DAY
     Dates: start: 20050829, end: 20050831
  2. PREDNISONE [Concomitant]
  3. THYROID REPLACEMENT THERAPY [Concomitant]
  4. KEFLEX [Concomitant]
  5. ALBUTEROL [Concomitant]
  6. RILUTEK [Concomitant]

REACTIONS (8)
  - ASTHENIA [None]
  - DISORIENTATION [None]
  - DIZZINESS [None]
  - DRUG ADMINISTRATION ERROR [None]
  - HEART RATE DECREASED [None]
  - HYPOVENTILATION [None]
  - SKIN DISCOLOURATION [None]
  - STOMACH DISCOMFORT [None]
